FAERS Safety Report 12111544 (Version 1)
Quarter: 2016Q1

REPORT INFORMATION
  Report Type: Spontaneous
  Country: US (occurrence: US)
  Receive Date: 20160224
  Receipt Date: 20160224
  Transmission Date: 20160526
  Serious: No
  Sender: FDA-Public Use
  Company Number: US-JAZZ-2015-US-016528

PATIENT
  Sex: Female

DRUGS (9)
  1. BUPIVACAINE HYDROCHLORIDE. [Suspect]
     Active Substance: BUPIVACAINE HYDROCHLORIDE
     Indication: PAIN
  2. HYDROMORPHONE HCL [Suspect]
     Active Substance: HYDROMORPHONE HYDROCHLORIDE
     Indication: ARTHRALGIA
     Dosage: UNK MG, QH
     Route: 037
  3. HYDROMORPHONE HCL [Suspect]
     Active Substance: HYDROMORPHONE HYDROCHLORIDE
     Indication: PROCTALGIA
  4. BUPIVACAINE HYDROCHLORIDE. [Suspect]
     Active Substance: BUPIVACAINE HYDROCHLORIDE
     Indication: PROCTALGIA
  5. HYDROMORPHONE HCL [Suspect]
     Active Substance: HYDROMORPHONE HYDROCHLORIDE
     Indication: PAIN
  6. PRIALT [Suspect]
     Active Substance: ZICONOTIDE ACETATE
     Indication: PROCTALGIA
     Dosage: UNK ?G, QH
  7. PRIALT [Suspect]
     Active Substance: ZICONOTIDE ACETATE
     Indication: ARTHRALGIA
     Dosage: UNK ?G, QH
     Dates: start: 2013
  8. PRIALT [Suspect]
     Active Substance: ZICONOTIDE ACETATE
     Indication: PAIN
  9. BUPIVACAINE HYDROCHLORIDE. [Suspect]
     Active Substance: BUPIVACAINE HYDROCHLORIDE
     Indication: ARTHRALGIA
     Dosage: UNK MG, QH
     Route: 037

REACTIONS (2)
  - Hallucination, auditory [Recovered/Resolved]
  - Hallucination [Recovered/Resolved]
